FAERS Safety Report 4309713-3 (Version None)
Quarter: 2004Q1

REPORT INFORMATION
  Report Type: 
  Country: None (occurrence: None)
  Receive Date: 20040301
  Receipt Date: 20040220
  Transmission Date: 20041129
  Serious: Yes (Hospitalization, Other)
  Sender: FDA-Public Use
  Company Number: 200410484GDS

PATIENT
  Age: 76 Year
  Sex: Female

DRUGS (3)
  1. ASPIRIN [Suspect]
     Indication: PLATELET AGGREGATION INHIBITION
     Dosage: 100 MG, QD; ORAL
     Route: 048
     Dates: end: 20031229
  2. NORVASC [Concomitant]
  3. BENAZEPRIL/HCTZ [Concomitant]

REACTIONS (8)
  - ANAEMIA [None]
  - BLADDER NEOPLASM [None]
  - CYSTOSCOPY ABNORMAL [None]
  - DIZZINESS [None]
  - HAEMATURIA [None]
  - HAEMORRHAGE [None]
  - MELAENA [None]
  - THROMBOSIS [None]
